FAERS Safety Report 7646526-9 (Version None)
Quarter: 2011Q3

REPORT INFORMATION
  Report Type: 
  Country: None (occurrence: None)
  Receive Date: 20110801
  Receipt Date: 20110725
  Transmission Date: 20111222
  Serious: Yes (Hospitalization, Other)
  Sender: FDA-Public Use
  Company Number: US-JNJFOC-20110208741

PATIENT
  Sex: Male

DRUGS (1)
  1. LEVAQUIN [Suspect]
     Indication: CELLULITIS
     Route: 048
     Dates: start: 20090201

REACTIONS (7)
  - ROTATOR CUFF SYNDROME [None]
  - MENISCUS LESION [None]
  - SYNOVITIS [None]
  - JOINT STIFFNESS [None]
  - TENDON RUPTURE [None]
  - DEPRESSION [None]
  - TENDONITIS [None]
